FAERS Safety Report 7056522-0 (Version None)
Quarter: 2010Q4

REPORT INFORMATION
  Report Type: 
  Country: None (occurrence: None)
  Receive Date: 20101021
  Receipt Date: 20101007
  Transmission Date: 20110411
  Serious: Yes (Other)
  Sender: FDA-Public Use
  Company Number: DE-ELI_LILLY_AND_COMPANY-DE201009002004

PATIENT
  Age: 53 Year
  Sex: Male
  Weight: 80 kg

DRUGS (5)
  1. EFFIENT [Suspect]
     Indication: ACUTE MYOCARDIAL INFARCTION
     Dosage: 10 MG, DAILY (1/D) (MAINTENANCE DOSE)
     Route: 065
     Dates: start: 20100903
  2. EFFIENT [Suspect]
     Dosage: 60 MG LOADING DOSE
     Route: 065
  3. ACETYLSALICYLIC ACID SRT [Concomitant]
     Dosage: UNK, UNKNOWN
     Route: 065
  4. HEPARIN [Concomitant]
     Dosage: UNK, UNKNOWN
     Route: 065
  5. ABCIXIMAB [Concomitant]
     Dosage: UNK, UNKNOWN
     Route: 065

REACTIONS (4)
  - ANAEMIA [None]
  - HYPOTONIA [None]
  - HYPOVOLAEMIA [None]
  - RETROPERITONEAL HAEMATOMA [None]
